FAERS Safety Report 18817685 (Version 1)
Quarter: 2021Q1

REPORT INFORMATION
  Report Type: Spontaneous
  Country: JP (occurrence: JP)
  Receive Date: 20210201
  Receipt Date: 20210201
  Transmission Date: 20210419
  Serious: Yes (Other)
  Sender: FDA-Public Use
  Company Number: NVSJ2021JP001325

PATIENT
  Age: 50 Year
  Sex: Male

DRUGS (1)
  1. CYCLOSPORINE. [Suspect]
     Active Substance: CYCLOSPORINE
     Indication: MYELODYSPLASTIC SYNDROME
     Dosage: UNK
     Route: 048

REACTIONS (5)
  - Disease progression [Unknown]
  - Myelodysplastic syndrome [Unknown]
  - Cytopenia [Unknown]
  - Renal disorder [Unknown]
  - Product use in unapproved indication [Unknown]
